FAERS Safety Report 7089501-8 (Version None)
Quarter: 2010Q4

REPORT INFORMATION
  Report Type: 
  Country: None (occurrence: None)
  Receive Date: 20101108
  Receipt Date: 20101102
  Transmission Date: 20110411
  Serious: Yes (Other)
  Sender: FDA-Public Use
  Company Number: US-BAYER-201026647NA

PATIENT
  Age: 74 Year
  Sex: Male

DRUGS (12)
  1. LEVITRA [Suspect]
     Indication: PRODUCT USED FOR UNKNOWN INDICATION
     Route: 048
     Dates: start: 20091001
  2. VITAMIN B-12 [Concomitant]
  3. FOLIC ACID [Concomitant]
  4. LISINOPRIL AND HYDROCHLOROTHIAZIDE [Concomitant]
  5. MULTIVITAMIN WITH MINERALS [Concomitant]
  6. NAPROXEN [Concomitant]
  7. OMEPRAZOLE [Concomitant]
  8. SIMVASTATIN [Concomitant]
  9. THIAMINE HCL [Concomitant]
  10. TYLENOL [Concomitant]
  11. ASPIRIN [Concomitant]
  12. PREDNISONE [Concomitant]
     Indication: TEMPORAL ARTERITIS

REACTIONS (2)
  - OPTIC ISCHAEMIC NEUROPATHY [None]
  - VISUAL ACUITY REDUCED [None]
